FAERS Safety Report 10883073 (Version 1)
Quarter: 2015Q1

REPORT INFORMATION
  Report Type: Spontaneous
  Country: US (occurrence: US)
  Receive Date: 20150303
  Receipt Date: 20150303
  Transmission Date: 20150721
  Serious: Yes (Death, Other)
  Sender: FDA-Public Use
  Company Number: US-GLAXOSMITHKLINE-US2015GSK027572

PATIENT
  Age: 54 Year
  Sex: Male

DRUGS (1)
  1. MEKINIST [Suspect]
     Active Substance: TRAMETINIB DIMETHYL SULFOXIDE
     Indication: PANCREATIC CARCINOMA
     Dosage: 2 MG, QD
     Route: 048
     Dates: start: 20141226

REACTIONS (1)
  - Death [Fatal]

NARRATIVE: CASE EVENT DATE: 20150213
